FAERS Safety Report 9356073 (Version 2)
Quarter: 2013Q2

REPORT INFORMATION
  Report Type: Spontaneous
  Country: RU (occurrence: RU)
  Receive Date: 20130619
  Receipt Date: 20130625
  Transmission Date: 20140414
  Serious: Yes (Hospitalization, Other)
  Sender: FDA-Public Use
  Company Number: RU-BRISTOL-MYERS SQUIBB COMPANY-19001221

PATIENT
  Age: 45 Year
  Sex: Female

DRUGS (6)
  1. DASATINIB [Suspect]
     Indication: CHRONIC MYELOID LEUKAEMIA
     Dosage: INTERRUPTED:MAY11;MAR12;05OCT12?REINTRO:100MG;NOV12?RESUMED:JUL12-100MG/DAY?DOSE:100MG;50MG
     Route: 048
     Dates: start: 20110131, end: 20130410
  2. VALCYTE [Suspect]
     Indication: CYTOMEGALOVIRUS INFECTION
  3. FLUCONAZOLE [Concomitant]
  4. OMEPRAZOLE [Concomitant]
  5. FOLIC ACID [Concomitant]
  6. VFEND [Concomitant]

REACTIONS (5)
  - Haematotoxicity [Unknown]
  - Anaemia [Unknown]
  - Pyrexia [Recovered/Resolved]
  - Cytogenetic analysis abnormal [Unknown]
  - Transplant [Unknown]
